FAERS Safety Report 4983082-8 (Version None)
Quarter: 2006Q2

REPORT INFORMATION
  Report Type: 
  Country: None (occurrence: None)
  Receive Date: 20060419
  Receipt Date: 20060405
  Transmission Date: 20061013
  Serious: Yes (Other)
  Sender: FDA-Public Use
  Company Number: UK175580

PATIENT
  Age: 65 Year
  Sex: Male

DRUGS (3)
  1. NEUPOGEN [Suspect]
     Indication: PERIPHERAL BLOOD STEM CELL APHERESIS
     Dosage: 10 MG/KG, 1 IN 1 DAYS, SC
     Route: 058
  2. CYCLOPHOSPHAMIDE [Concomitant]
  3. HEPARIN [Concomitant]

REACTIONS (5)
  - ABDOMINAL DISTENSION [None]
  - ACTIVATED PARTIAL THROMBOPLASTIN TIME PROLONGED [None]
  - HAEMOGLOBIN DECREASED [None]
  - PAIN [None]
  - RETROPERITONEAL HAEMATOMA [None]
